FAERS Safety Report 14990871 (Version 1)
Quarter: 2018Q2

REPORT INFORMATION
  Report Type: Spontaneous
  Country: US (occurrence: US)
  Receive Date: 20180517
  Receipt Date: 20180517
  Transmission Date: 20180711
  Serious: Yes (Hospitalization)
  Sender: FDA-Public Use
  Company Number: None

PATIENT
  Age: 81 Year
  Sex: Male
  Weight: 75 kg

DRUGS (2)
  1. PEMBROLIZUMAB. [Suspect]
     Active Substance: PEMBROLIZUMAB
  2. AZACITIDINE. [Suspect]
     Active Substance: AZACITIDINE

REACTIONS (2)
  - Diarrhoea [None]
  - Sepsis [None]

NARRATIVE: CASE EVENT DATE: 20180511
